FAERS Safety Report 10601877 (Version 2)
Quarter: 2014Q4

REPORT INFORMATION
  Report Type: Spontaneous
  Country: US (occurrence: US)
  Receive Date: 20141124
  Receipt Date: 20141124
  Transmission Date: 20150529
  Serious: No
  Sender: FDA-Public Use
  Company Number: US-MYLANLABS-2014S1006422

PATIENT
  Age: 72 Year
  Sex: Male
  Weight: 79.38 kg

DRUGS (18)
  1. MAXZIDE [Suspect]
     Active Substance: HYDROCHLOROTHIAZIDE\TRIAMTERENE
     Indication: LOCAL SWELLING
     Dosage: 12.5 MG,QD
     Route: 048
     Dates: start: 201401
  2. COREG [Suspect]
     Active Substance: CARVEDILOL
     Dosage: 6.25 MG,AM
  3. NORVASC [Suspect]
     Active Substance: AMLODIPINE BESYLATE
     Indication: BLOOD PRESSURE INCREASED
     Dosage: 2.5 MG,BID
  4. MAXZIDE [Suspect]
     Active Substance: HYDROCHLOROTHIAZIDE\TRIAMTERENE
     Dosage: 12.5 MG,BIWEEKLY
     Route: 048
     Dates: start: 201306, end: 201401
  5. ZOCOR [Concomitant]
     Active Substance: SIMVASTATIN
     Dosage: UNK
  6. COUMADIN [Suspect]
     Active Substance: WARFARIN SODIUM
     Indication: CARDIAC VALVE DISEASE
  7. GLYBURIDE. [Concomitant]
     Active Substance: GLYBURIDE
     Dosage: UNK
  8. RELAFEN [Concomitant]
     Active Substance: NABUMETONE
     Dosage: UNK
  9. COREG [Suspect]
     Active Substance: CARVEDILOL
     Indication: BLOOD PRESSURE INCREASED
  10. DIABETA [Concomitant]
     Active Substance: GLYBURIDE
     Dosage: 10 MG,BID
  11. PRESCO [Concomitant]
     Dosage: 25 MG,BID
  12. COREG [Suspect]
     Active Substance: CARVEDILOL
     Dosage: 12.5 MG,HS
  13. ASPIRIN. [Concomitant]
     Active Substance: ASPIRIN
     Dosage: 81 MG,QD
  14. MAXZIDE [Suspect]
     Active Substance: HYDROCHLOROTHIAZIDE\TRIAMTERENE
     Indication: BLOOD PRESSURE INCREASED
     Dosage: 12.5 MG,QD
     Route: 048
     Dates: start: 2000, end: 201306
  15. INSULIN [Concomitant]
     Active Substance: INSULIN NOS
     Dosage: UNK UNK,PRN
  16. COUMADIN [Suspect]
     Active Substance: WARFARIN SODIUM
     Dosage: 1.5 MG,QOD
  17. COUMADIN [Suspect]
     Active Substance: WARFARIN SODIUM
     Dosage: 3 MG,QOD
  18. MULTIVITAMIN [Concomitant]
     Active Substance: VITAMINS
     Dosage: UNK UNK,QD

REACTIONS (9)
  - Nasal congestion [Not Recovered/Not Resolved]
  - Drug ineffective [Not Recovered/Not Resolved]
  - Myalgia [Recovered/Resolved]
  - Oesophageal discomfort [Not Recovered/Not Resolved]
  - Blood pressure increased [Not Recovered/Not Resolved]
  - Muscle fatigue [Not Recovered/Not Resolved]
  - Blood glucose fluctuation [Not Recovered/Not Resolved]
  - Malaise [Not Recovered/Not Resolved]
  - Neuropathy peripheral [Recovered/Resolved]

NARRATIVE: CASE EVENT DATE: 201401
